FAERS Safety Report 20320879 (Version 2)
Quarter: 2022Q1

REPORT INFORMATION
  Report Type: Report from Study
  Country: TH (occurrence: TH)
  Receive Date: 20220111
  Receipt Date: 20220127
  Transmission Date: 20220423
  Serious: Yes (Hospitalization)
  Sender: FDA-Public Use
  Company Number: TH-CELLTRION INC.-2018TH017573

PATIENT

DRUGS (20)
  1. INFLIXIMAB [Suspect]
     Active Substance: INFLIXIMAB
     Indication: Rheumatoid arthritis
     Dosage: 141 MG
     Route: 042
     Dates: start: 20171025, end: 20171025
  2. INFLIXIMAB [Suspect]
     Active Substance: INFLIXIMAB
     Dosage: 138 MG
     Route: 042
     Dates: start: 20171113, end: 20171113
  3. INFLIXIMAB [Suspect]
     Active Substance: INFLIXIMAB
     Dosage: 141 MG
     Route: 042
     Dates: start: 20171207, end: 20171207
  4. INFLIXIMAB [Suspect]
     Active Substance: INFLIXIMAB
     Dosage: 141.1 MG
     Route: 042
     Dates: start: 20180214, end: 20180214
  5. INFLIXIMAB [Suspect]
     Active Substance: INFLIXIMAB
     Dosage: 147.0 MG
     Route: 042
     Dates: start: 20180329, end: 20180329
  6. INFLIXIMAB [Suspect]
     Active Substance: INFLIXIMAB
     Dosage: 147 MG
     Route: 042
     Dates: start: 20180524, end: 20180524
  7. FOLIC ACID [Concomitant]
     Active Substance: FOLIC ACID
     Indication: Prophylaxis
     Dosage: 5 MG, QD
     Route: 048
     Dates: start: 20121026
  8. LEFLUNOMIDE [Concomitant]
     Active Substance: LEFLUNOMIDE
     Indication: Rheumatoid arthritis
     Dosage: 20 MG, QD
     Route: 048
     Dates: start: 20130528
  9. PREDNISOLONE [Concomitant]
     Active Substance: PREDNISOLONE
     Indication: Rheumatoid arthritis
     Dosage: 5 MG, QD
     Route: 048
     Dates: start: 20131112
  10. CALCIUM CARBONATE [Concomitant]
     Active Substance: CALCIUM CARBONATE
     Indication: Mineral supplementation
     Dosage: 1500 MG, QD
     Route: 048
     Dates: start: 20140623
  11. LOSARTAN [Concomitant]
     Active Substance: LOSARTAN
     Indication: Hypertension
     Dosage: 100 MG, QD
     Route: 048
     Dates: start: 20150331
  12. METHOTREXATE [Concomitant]
     Active Substance: METHOTREXATE
     Indication: Rheumatoid arthritis
     Dosage: 20 MG, QWK
     Route: 048
     Dates: start: 20150922
  13. ALFACALCIDOL [Concomitant]
     Active Substance: ALFACALCIDOL
     Indication: Vitamin supplementation
     Dosage: 1 TB, QD
     Route: 048
     Dates: start: 20150922
  14. OMEPRAZOLE [Concomitant]
     Active Substance: OMEPRAZOLE
     Indication: Prophylaxis against gastrointestinal ulcer
     Dosage: 20 MG, QD
     Route: 048
     Dates: start: 20170725
  15. AZATHIOPRINE [Concomitant]
     Active Substance: AZATHIOPRINE
     Indication: Rheumatoid arthritis
     Dosage: 50 MG, QD
     Route: 048
     Dates: start: 20170725
  16. DICLOFENAC [Concomitant]
     Active Substance: DICLOFENAC
     Indication: Rheumatoid arthritis
     Dosage: 50 MG, BID
     Route: 048
     Dates: start: 20170905
  17. AMLODIPINE [Concomitant]
     Active Substance: AMLODIPINE BESYLATE
     Indication: Hypertension
     Dosage: 10 MG, QD
     Route: 048
     Dates: start: 20171025
  18. ATENOLOL [Concomitant]
     Active Substance: ATENOLOL
     Indication: Hypertension
     Dosage: 50 MG, QD
     Route: 048
     Dates: start: 20171113
  19. ISONIAZID [Concomitant]
     Active Substance: ISONIAZID
     Indication: Antibiotic prophylaxis
     Dosage: 300 MG, QD
     Route: 048
     Dates: start: 20170913, end: 20180613
  20. PYRIDOXINE (Vit B6) [Concomitant]
     Indication: Antibiotic prophylaxis
     Dosage: 10 MG, TID
     Route: 048
     Dates: start: 20170913, end: 20180613

REACTIONS (1)
  - Road traffic accident [Recovered/Resolved with Sequelae]

NARRATIVE: CASE EVENT DATE: 20180109
